FAERS Safety Report 23597664 (Version 1)
Quarter: 2024Q1

REPORT INFORMATION
  Report Type: Spontaneous
  Country: US (occurrence: US)
  Receive Date: 20240305
  Receipt Date: 20240305
  Transmission Date: 20240410
  Serious: Yes (Hospitalization)
  Sender: FDA-Public Use
  Company Number: US-ABBVIE-5660006

PATIENT

DRUGS (1)
  1. DURYSTA [Suspect]
     Active Substance: BIMATOPROST
     Indication: Open angle glaucoma
     Dosage: TIME INTERVAL: AS NECESSARY: FORM STRENGTH : 10 MICROGRAM, BIMATOPROST 0.01 MG INS
     Route: 050
     Dates: start: 2024, end: 2024

REACTIONS (3)
  - Unevaluable event [Unknown]
  - Device dislocation [Unknown]
  - Corneal oedema [Unknown]
